FAERS Safety Report 22611390 (Version 1)
Quarter: 2023Q2

REPORT INFORMATION
  Report Type: Spontaneous
  Country: US (occurrence: US)
  Receive Date: 20230616
  Receipt Date: 20230616
  Transmission Date: 20230722
  Serious: No
  Sender: FDA-Public Use
  Company Number: US-JUBILANT PHARMA LTD-2023US000151

PATIENT

DRUGS (1)
  1. DRAXIMAGE MAA [Suspect]
     Active Substance: TECHNETIUM TC-99M ALBUMIN AGGREGATED
     Indication: Pulmonary imaging procedure
     Dosage: 6 MCI, SINGLE DOSE
     Dates: start: 20230315, end: 20230315

REACTIONS (3)
  - Drug ineffective [Unknown]
  - Incorrect route of product administration [Unknown]
  - Product preparation issue [Unknown]

NARRATIVE: CASE EVENT DATE: 20230315
